FAERS Safety Report 7150557-5 (Version None)
Quarter: 2010Q4

REPORT INFORMATION
  Report Type: 
  Country: None (occurrence: None)
  Receive Date: 20101210
  Receipt Date: 20101207
  Transmission Date: 20110411
  Serious: Yes (Life-Threatening, Hospitalization)
  Sender: FDA-Public Use
  Company Number: AU-B.I. PHARMACEUTICALS,INC./RIDGEFIELD-2010-AU-00848AU

PATIENT
  Sex: Female
  Weight: 50 kg

DRUGS (2)
  1. MOBIC [Suspect]
     Indication: OSTEOARTHRITIS
     Dosage: 15 MG
     Route: 048
     Dates: start: 20090301, end: 20101126
  2. ASPIRIN [Suspect]
     Route: 048
     Dates: start: 20050101, end: 20101126

REACTIONS (3)
  - GASTRIC ULCER [None]
  - HAEMATEMESIS [None]
  - PNEUMONIA [None]
